FAERS Safety Report 6405259-7 (Version None)
Quarter: 2009Q4

REPORT INFORMATION
  Report Type: 
  Country: None (occurrence: None)
  Receive Date: 20091019
  Receipt Date: 20091007
  Transmission Date: 20100525
  Serious: Yes (Other)
  Sender: FDA-Public Use
  Company Number: US-ASTRAZENECA-2009UW11446

PATIENT
  Age: 68 Year
  Sex: Male
  Weight: 113.4 kg

DRUGS (3)
  1. SYMBICORT [Suspect]
     Indication: ASTHMA
     Dosage: 160/4.5 MCG BID
     Route: 055
     Dates: start: 20070101
  2. ASPIRIN [Concomitant]
     Route: 065
  3. DIOVAN [Concomitant]
     Indication: BLOOD PRESSURE
     Route: 065

REACTIONS (5)
  - CATARACT [None]
  - COUGH [None]
  - PNEUMONIA [None]
  - SUICIDAL IDEATION [None]
  - VIRAL INFECTION [None]
